FAERS Safety Report 7423292-3 (Version None)
Quarter: 2011Q2

REPORT INFORMATION
  Report Type: 
  Country: None (occurrence: None)
  Receive Date: 20110419
  Receipt Date: 20101208
  Transmission Date: 20111010
  Serious: Yes (Hospitalization, Other)
  Sender: FDA-Public Use
  Company Number: US-BAYER-201022917NA

PATIENT
  Age: 33 Year
  Sex: Female
  Weight: 95 kg

DRUGS (12)
  1. YAZ [Suspect]
     Indication: PELVIC PAIN
  2. LISINOPRIL [Concomitant]
     Dosage: UNK
     Dates: start: 20100301
  3. CEPHALEXIN [Concomitant]
     Dosage: UNK
     Dates: start: 20030901
  4. YAZ [Suspect]
     Indication: POLYCYSTIC OVARIES
     Dosage: UNK
     Route: 048
     Dates: start: 20061001, end: 20070501
  5. ZESTRIL [Concomitant]
  6. AMOX/K/CLAV [Concomitant]
  7. OXAPROZIN [Concomitant]
     Dosage: UNK
     Dates: start: 20010101
  8. HYDROCHLOROTHIAZIDE [Concomitant]
     Dosage: UNK
     Dates: start: 20060101, end: 20100101
  9. YASMIN [Suspect]
     Indication: PELVIC PAIN
  10. MACROBID [Concomitant]
     Dosage: UNK
     Dates: start: 20040101
  11. YASMIN [Suspect]
     Indication: POLYCYSTIC OVARIES
     Dosage: UNK
     Route: 048
     Dates: start: 20021201, end: 20030101
  12. LEVAQUIN [Concomitant]
     Dosage: UNK
     Dates: start: 20050101

REACTIONS (2)
  - CHOLECYSTITIS [None]
  - CHOLELITHIASIS [None]
